FAERS Safety Report 10718313 (Version 2)
Quarter: 2015Q1

REPORT INFORMATION
  Report Type: Spontaneous
  Country: US (occurrence: US)
  Receive Date: 20150118
  Receipt Date: 20150120
  Transmission Date: 20150721
  Serious: Yes (Death, Hospitalization)
  Sender: FDA-Public Use
  Company Number: US-JNJFOC-20150108092

PATIENT
  Age: 9 Month
  Sex: Male

DRUGS (2)
  1. AMITRIPTYLINE [Suspect]
     Active Substance: AMITRIPTYLINE
     Indication: POISONING DELIBERATE
     Route: 048
  2. DIPHENHYDRAMINE [Suspect]
     Active Substance: DIPHENHYDRAMINE
     Indication: POISONING DELIBERATE
     Route: 048

REACTIONS (5)
  - Brain oedema [Fatal]
  - Intentional product misuse [Fatal]
  - Pulmonary sequestration [Fatal]
  - Toxicity to various agents [Fatal]
  - Bronchopneumonia [Fatal]
